FAERS Safety Report 4651546-2 (Version None)
Quarter: 2005Q2

REPORT INFORMATION
  Report Type: 
  Country: None (occurrence: None)
  Receive Date: 20050502
  Receipt Date: 20050426
  Transmission Date: 20051028
  Serious: Yes (Other)
  Sender: FDA-Public Use
  Company Number: 2005037693

PATIENT
  Age: 63 Year
  Sex: Male

DRUGS (13)
  1. LIPITOR [Suspect]
     Indication: BLOOD CHOLESTEROL INCREASED
     Dates: start: 20041229, end: 20050127
  2. PREDNISONE [Concomitant]
  3. TACROLIMUS (TACROLIMUS) [Concomitant]
  4. BACTRIM [Concomitant]
  5. ACYCLOVIR [Concomitant]
  6. DIGOXIN [Concomitant]
  7. PANTOPRAZOLE (PATOPRAZOLE) [Concomitant]
  8. URSODIOL [Concomitant]
  9. IRON (IRON) [Concomitant]
  10. MULTIVITAMINS (ASCORBIC ACID, ERGOCALCIDEROL, FOLIC ACID, NICOTINAMIDE [Concomitant]
  11. ASPIRIN [Concomitant]
  12. CALCIUM (CALCIUM) [Concomitant]
  13. GLIPIZIDE [Concomitant]

REACTIONS (8)
  - BILE DUCT STENOSIS [None]
  - BILIARY TRACT DISORDER [None]
  - BLOOD CHOLESTEROL INCREASED [None]
  - CHOLANGITIS [None]
  - CHOLESTASIS [None]
  - COMPLICATIONS OF TRANSPLANTED LIVER [None]
  - CONTRAINDICATION TO MEDICAL TREATMENT [None]
  - LIVER TRANSPLANT REJECTION [None]
